FAERS Safety Report 5085671-1 (Version None)
Quarter: 2006Q3

REPORT INFORMATION
  Report Type: 
  Country: None (occurrence: None)
  Receive Date: 20060822
  Receipt Date: 20060809
  Transmission Date: 20061208
  Serious: Yes (Other)
  Sender: FDA-Public Use
  Company Number: 2006GB01404

PATIENT
  Age: 710 Month
  Sex: Female

DRUGS (7)
  1. ZESTRIL [Suspect]
     Indication: HYPERTENSION
     Route: 048
     Dates: start: 19980101
  2. LODINE [Interacting]
     Indication: ARTHRITIS
     Dates: start: 20060801
  3. HRT [Concomitant]
  4. VENTOLIN [Concomitant]
  5. SERETIDE [Concomitant]
  6. ACETAMINOPHEN [Concomitant]
  7. BENDROFLUAZIDE [Concomitant]

REACTIONS (4)
  - ARTHRITIS [None]
  - ASTHMA [None]
  - DRUG INTERACTION [None]
  - MENOPAUSAL SYMPTOMS [None]
